FAERS Safety Report 8885646 (Version 1)
Quarter: 2012Q4

REPORT INFORMATION
  Report Type: 
  Country: FI (occurrence: FI)
  Receive Date: 20121102
  Receipt Date: 20121102
  Transmission Date: 20130627
  Serious: Yes (Other)
  Sender: FDA-Public Use
  Company Number: FI-AMGEN-FINSP2012069664

PATIENT
  Age: 56 Year
  Sex: Male

DRUGS (6)
  1. ENBREL [Suspect]
     Indication: RHEUMATOID ARTHRITIS
     Dosage: 50 mg, weekly
     Route: 058
     Dates: start: 201012, end: 201106
  2. METHOTREXATE SODIUM [Concomitant]
     Indication: RHEUMATOID ARTHRITIS
     Dosage: 25 mg, weekly
     Dates: start: 2009, end: 201201
  3. PREDNISOLON                        /00016201/ [Concomitant]
     Indication: RHEUMATOID ARTHRITIS
     Dosage: 5 mg, 1x/day
     Route: 048
     Dates: start: 2003
  4. TRIPTYL [Concomitant]
     Dosage: 20 mg, 1x/day
     Route: 048
     Dates: start: 2007
  5. CALCICHEW-D3 FORTE [Concomitant]
     Dosage: 2 DF per day
     Route: 048
     Dates: start: 2003
  6. SOMAC [Concomitant]
     Dosage: 20 mg, 1x/day
     Route: 048
     Dates: start: 2003

REACTIONS (1)
  - Dermatitis psoriasiform [Recovered/Resolved]
